FAERS Safety Report 25101149 (Version 1)
Quarter: 2025Q1

REPORT INFORMATION
  Report Type: Report from Study
  Country: IT (occurrence: IT)
  Receive Date: 20250320
  Receipt Date: 20250320
  Transmission Date: 20250409
  Serious: Yes (Life-Threatening, Hospitalization, Other)
  Sender: DAIICHI
  Company Number: None

PATIENT
  Age: 57 Year
  Sex: Female
  Weight: 62 kg

DRUGS (1)
  1. ENHERTU [Suspect]
     Active Substance: FAM-TRASTUZUMAB DERUXTECAN-NXKI
     Indication: Product used for unknown indication
     Dosage: 270 MG, ONCE EVERY 3 WK (270 MG EVERY 21 DAYS)
     Route: 065
     Dates: start: 20241029

REACTIONS (1)
  - Acute respiratory failure [Recovered/Resolved]

NARRATIVE: CASE EVENT DATE: 20241119
